FAERS Safety Report 17473504 (Version 1)
Quarter: 2020Q1

REPORT INFORMATION
  Report Type: Report from Study
  Country: TW (occurrence: TW)
  Receive Date: 20200228
  Receipt Date: 20200228
  Transmission Date: 20200409
  Serious: Yes (Other)
  Sender: FDA-Public Use
  Company Number: TW-JNJFOC-20190628025

PATIENT
  Age: 53 Year
  Sex: Male
  Weight: 61.7 kg

DRUGS (1)
  1. GOLIMUMAB [Suspect]
     Active Substance: GOLIMUMAB
     Indication: RHEUMATOID ARTHRITIS
     Route: 058
     Dates: start: 20180206

REACTIONS (1)
  - Mycobacterial infection [Unknown]

NARRATIVE: CASE EVENT DATE: 20190618
